FAERS Safety Report 17716755 (Version 1)
Quarter: 2020Q2

REPORT INFORMATION
  Report Type: Spontaneous
  Country: US (occurrence: US)
  Receive Date: 20200428
  Receipt Date: 20200428
  Transmission Date: 20200714
  Serious: No
  Sender: FDA-Public Use
  Company Number: US-TORRENT-00010182

PATIENT
  Sex: Female

DRUGS (1)
  1. ANAGRELIDE HYDROCHLORIDE CAPSULES [Suspect]
     Active Substance: ANAGRELIDE HYDROCHLORIDE
     Indication: PRODUCT USED FOR UNKNOWN INDICATION
     Dosage: OPENING THE CAPSULE, TAKING ONE HALF IN THE MORNING?AND OTHER HALF IN THE NIGHT

REACTIONS (2)
  - Heart rate increased [Unknown]
  - Wrong technique in product usage process [Unknown]
